FAERS Safety Report 7796069-7 (Version None)
Quarter: 2011Q4

REPORT INFORMATION
  Report Type: 
  Country: None (occurrence: None)
  Receive Date: 20111004
  Receipt Date: 20110926
  Transmission Date: 20120403
  Serious: Yes (Other)
  Sender: FDA-Public Use
  Company Number: AU-ELI_LILLY_AND_COMPANY-AU201109007307

PATIENT
  Age: 72 Year
  Sex: Male

DRUGS (2)
  1. CIALIS [Suspect]
     Indication: ERECTILE DYSFUNCTION
     Dosage: 20 MG, PRN
     Route: 048
     Dates: start: 20040101
  2. IRBESARTAN + HYDROCHLOROTHIAZIDE [Concomitant]

REACTIONS (6)
  - HYPERHIDROSIS [None]
  - EPISTAXIS [None]
  - SYNCOPE [None]
  - FATIGUE [None]
  - VISION BLURRED [None]
  - MUSCLE TIGHTNESS [None]
